FAERS Safety Report 5881290-5 (Version None)
Quarter: 2008Q3

REPORT INFORMATION
  Report Type: 
  Country: None (occurrence: None)
  Receive Date: 20080910
  Receipt Date: 20080825
  Transmission Date: 20090109
  Serious: Yes (Other)
  Sender: FDA-Public Use
  Company Number: 2008BI021984

PATIENT
  Age: 44 Year
  Sex: Female

DRUGS (1)
  1. TYSABRI [Suspect]
     Indication: RELAPSING-REMITTING MULTIPLE SCLEROSIS
     Dosage: ; IV
     Route: 042
     Dates: start: 20080619

REACTIONS (4)
  - ALOPECIA [None]
  - BLOOD IRON DECREASED [None]
  - DEPRESSION [None]
  - VITAMIN B12 DEFICIENCY [None]
